FAERS Safety Report 8983975 (Version 1)
Quarter: 2012Q4

REPORT INFORMATION
  Report Type: Spontaneous
  Country: US (occurrence: None)
  Receive Date: 20121218
  Receipt Date: 20121218
  Transmission Date: 20130627
  Serious: Yes (Hospitalization, Disabling, Other)
  Sender: FDA-Public Use
  Company Number: None

PATIENT
  Sex: Male
  Weight: 221 kg

DRUGS (1)
  1. LEXAPRO [Suspect]

REACTIONS (2)
  - Convulsion [None]
  - Drug prescribing error [None]
